FAERS Safety Report 5342748-0 (Version None)
Quarter: 2007Q2

REPORT INFORMATION
  Report Type: 
  Country: None (occurrence: None)
  Receive Date: 20070601
  Receipt Date: 20070525
  Transmission Date: 20071010
  Serious: Yes (Hospitalization)
  Sender: FDA-Public Use
  Company Number: SE-GENENTECH-242006

PATIENT
  Sex: Female

DRUGS (4)
  1. RITUXIMAB [Suspect]
     Indication: B-CELL LYMPHOMA
  2. IDARUBICIN HCL [Suspect]
     Indication: B-CELL LYMPHOMA
  3. CYTOSINE ARABINOSIDE [Suspect]
     Indication: B-CELL LYMPHOMA
  4. ETOPOSIDE [Suspect]
     Indication: B-CELL LYMPHOMA

REACTIONS (1)
  - GASTRIC ULCER HAEMORRHAGE [None]
